FAERS Safety Report 4684760-0 (Version None)
Quarter: 2005Q2

REPORT INFORMATION
  Report Type: 
  Country: None (occurrence: None)
  Receive Date: 20050531
  Receipt Date: 20050119
  Transmission Date: 20051028
  Serious: Yes (Hospitalization, Other)
  Sender: FDA-Public Use
  Company Number: USA050187465

PATIENT
  Age: 28 Year
  Sex: Male
  Weight: 95 kg

DRUGS (7)
  1. ZYPREXA [Suspect]
     Indication: SCHIZOAFFECTIVE DISORDER
     Dosage: 20 MG/2 DAY
     Dates: start: 20030922, end: 20041204
  2. DEPAKOTE [Concomitant]
  3. LITHIUM [Concomitant]
  4. HALDOL (HALOPERIDOL DECANOATE) [Concomitant]
  5. SEROQUEL [Concomitant]
  6. RESTORIL [Concomitant]
  7. AMANTADINE [Concomitant]

REACTIONS (5)
  - DIABETIC COMA [None]
  - DIABETIC KETOACIDOSIS [None]
  - HYPERGLYCAEMIA [None]
  - PRESCRIBED OVERDOSE [None]
  - WEIGHT INCREASED [None]
